FAERS Safety Report 23883932 (Version 1)
Quarter: 2024Q2

REPORT INFORMATION
  Report Type: Spontaneous
  Country: US (occurrence: None)
  Receive Date: 20240521
  Receipt Date: 20240521
  Transmission Date: 20240715
  Serious: No
  Sender: FDA-Public Use
  Company Number: None

PATIENT
  Age: 59 Year
  Sex: Male
  Weight: 81 kg

DRUGS (1)
  1. PAPAVERINE\PHENTOLAMINE [Suspect]
     Active Substance: PAPAVERINE\PHENTOLAMINE
     Indication: Erectile dysfunction
     Dosage: 0.2 ML 3-4 TIMES WEEKLY INTRACAVERNOUS?
     Route: 017

REACTIONS (5)
  - Drug ineffective [None]
  - Extra dose administered [None]
  - Nonspecific reaction [None]
  - Injection site discolouration [None]
  - Leukoplakia of penis [None]

NARRATIVE: CASE EVENT DATE: 20240515
